FAERS Safety Report 9350732 (Version 3)
Quarter: 2014Q1

REPORT INFORMATION
  Report Type: Spontaneous
  Country: IT (occurrence: IT)
  Receive Date: 20130617
  Receipt Date: 20140319
  Transmission Date: 20141002
  Serious: Yes (Death, Other)
  Sender: FDA-Public Use
  Company Number: IT-JNJFOC-20130508248

PATIENT
  Age: 48 Year
  Sex: Female

DRUGS (2)
  1. TRAMADOL HYDROCHLORIDE [Suspect]
     Indication: PRODUCT USED FOR UNKNOWN INDICATION
     Route: 065
  2. CARBAMAZEPINE [Concomitant]
     Indication: MENTAL DISORDER
     Route: 065

REACTIONS (4)
  - Completed suicide [Fatal]
  - Respiratory depression [Fatal]
  - Overdose [Unknown]
  - Bradycardia [Not Recovered/Not Resolved]
